FAERS Safety Report 18792076 (Version 9)
Quarter: 2022Q2

REPORT INFORMATION
  Report Type: Report from Study
  Country: JP (occurrence: None)
  Receive Date: 20210127
  Receipt Date: 20220412
  Transmission Date: 20220721
  Serious: Yes (Death, Hospitalization)
  Sender: FDA-Public Use
  Company Number: JP-ROCHE-2681136

PATIENT
  Age: 79 Year
  Sex: Male
  Weight: 54 kg

DRUGS (27)
  1. PLACEBO [Suspect]
     Active Substance: UNSPECIFIED INGREDIENT
     Indication: Non-small cell lung cancer
     Dosage: ON DAY 1 OF EACH 21 DAY CYCLE, START DATE OF MOST RECENT DOSE PRIOR TO SAE: 04/SEP/2020 (600 MG)
     Route: 042
     Dates: start: 20200904
  2. ATEZOLIZUMAB [Suspect]
     Active Substance: ATEZOLIZUMAB
     Indication: Non-small cell lung cancer
     Dosage: INTRAVENOUS (IV) INFUSION Q3W ON DAY 1 OF EACH 21-DAY CYCLE.?START DATE OF MOST RECENT DOSE OF STUDY
     Route: 042
     Dates: start: 20200904
  3. ANORO ELLIPTA [Concomitant]
     Active Substance: UMECLIDINIUM BROMIDE\VILANTEROL TRIFENATATE
     Indication: Chronic obstructive pulmonary disease
     Dosage: 30 DOSES
     Dates: start: 202006
  4. POTASSIUM CHLORIDE [Concomitant]
     Active Substance: POTASSIUM CHLORIDE
     Indication: Fluid replacement
     Dates: start: 20200920, end: 20200924
  5. POTASSIUM CHLORIDE [Concomitant]
     Active Substance: POTASSIUM CHLORIDE
     Dates: start: 20201214, end: 20210121
  6. CALCIUM CHLORIDE\POTASSIUM CHLORIDE\SODIUM CHLORIDE\SODIUM LACTATE [Concomitant]
     Active Substance: CALCIUM CHLORIDE\POTASSIUM CHLORIDE\SODIUM CHLORIDE\SODIUM LACTATE
     Indication: Fluid replacement
     Dates: start: 20200917, end: 20200922
  7. GLYCYRON [Concomitant]
     Indication: Aspartate aminotransferase increased
     Dosage: 1 TABLET
     Route: 048
     Dates: start: 20201016, end: 20201022
  8. GLYCYRON [Concomitant]
     Indication: Alanine aminotransferase increased
  9. LANSOPRAZOLE [Concomitant]
     Active Substance: LANSOPRAZOLE
     Dosage: GIVEN FOR PROPHYLAXIS: YES
     Dates: start: 20201103, end: 20201229
  10. RABEPRAZOLE SODIUM [Concomitant]
     Active Substance: RABEPRAZOLE SODIUM
     Dosage: GIVEN FOR PROPHYLAXIS: YES
     Dates: start: 20201229
  11. REBAMIPIDE [Concomitant]
     Active Substance: REBAMIPIDE
     Dates: start: 20201109, end: 20201125
  12. MICONAZOLE [Concomitant]
     Active Substance: MICONAZOLE
     Indication: Oral candidiasis
     Dosage: 1 OTHER
     Route: 061
     Dates: start: 20201210, end: 20201224
  13. BISOPROLOL [Concomitant]
     Active Substance: BISOPROLOL
     Indication: Sinus tachycardia
     Dosage: 1 OTHER
     Route: 062
     Dates: start: 20201212
  14. SULFAMETHOXAZOLE\TRIMETHOPRIM [Concomitant]
     Active Substance: SULFAMETHOXAZOLE\TRIMETHOPRIM
     Dates: start: 20201218, end: 20210104
  15. FOLIC ACID [Concomitant]
     Active Substance: FOLIC ACID
     Dates: start: 20201225, end: 20210104
  16. CALCIUM CHLORIDE\POTASSIUM CHLORIDE\SODIUM ACETATE\SODIUM CHLORIDE [Concomitant]
     Active Substance: CALCIUM CHLORIDE\POTASSIUM CHLORIDE\SODIUM ACETATE\SODIUM CHLORIDE
     Dates: start: 20201029, end: 20201029
  17. CARBAZOCHROME SODIUM SULFONATE [Concomitant]
     Active Substance: CARBAZOCHROME SODIUM SULFONATE
     Dates: start: 20201029, end: 20201029
  18. ISOTONIC SODIUM CHLORIDE SOLUTION [Concomitant]
     Active Substance: SODIUM CHLORIDE
     Dates: start: 20201029, end: 20201104
  19. ISOTONIC SODIUM CHLORIDE SOLUTION [Concomitant]
     Active Substance: SODIUM CHLORIDE
     Dates: start: 20201202, end: 20210103
  20. VITAMEDIN (JAPAN) [Concomitant]
     Dates: start: 20201117, end: 20210103
  21. SODIUM CHLORIDE [Concomitant]
     Active Substance: SODIUM CHLORIDE
     Indication: Fluid replacement
     Dates: start: 20201127, end: 20201127
  22. DEXCHLORPHENIRAMINE MALEATE [Concomitant]
     Active Substance: DEXCHLORPHENIRAMINE MALEATE
     Indication: Rash
     Dates: start: 20201127, end: 20201127
  23. DEXTROSE [Concomitant]
     Active Substance: DEXTROSE
     Dates: start: 20210119, end: 20210120
  24. AZULENE [Concomitant]
     Active Substance: AZULENE
     Indication: Epidermolysis
     Dates: start: 20210119, end: 20210120
  25. OMEPRAZOLE [Concomitant]
     Active Substance: OMEPRAZOLE
     Dates: start: 20210120, end: 20210121
  26. HEPARIN SODIUM [Concomitant]
     Active Substance: HEPARIN SODIUM
     Dates: start: 20201118, end: 20201222
  27. HEPARINOID [Concomitant]
     Dates: start: 20210104

REACTIONS (3)
  - Myasthenia gravis [Fatal]
  - Myositis [Unknown]
  - Influenza like illness [Recovered/Resolved]

NARRATIVE: CASE EVENT DATE: 20200914
